FAERS Safety Report 19439721 (Version 1)
Quarter: 2021Q2

REPORT INFORMATION
  Report Type: Spontaneous
  Country: CA (occurrence: CA)
  Receive Date: 20210620
  Receipt Date: 20210620
  Transmission Date: 20210717
  Serious: Yes (Other)
  Sender: FDA-Public Use
  Company Number: CA-HLS-202107662

PATIENT
  Age: 31 Year
  Sex: Male
  Weight: 122 kg

DRUGS (4)
  1. ARIPIPRAZOLE. [Concomitant]
     Active Substance: ARIPIPRAZOLE
     Dosage: 400.0 MILLIGRAM 1 EVERY 28 DAYS
     Route: 030
  2. OLANZAPINE. [Concomitant]
     Active Substance: OLANZAPINE
     Dosage: 10.0 MILLIGRAM 1 EVERY 1 DAYS
     Route: 065
  3. CLOZAPINE. [Suspect]
     Active Substance: CLOZAPINE
     Indication: SCHIZOPHRENIA
     Dosage: 75.0 MILLIGRAM 1 EVERY 1 DAYS
     Route: 048
  4. OLANZAPINE. [Concomitant]
     Active Substance: OLANZAPINE
     Dosage: 5.0 MILLIGRAM 1 EVERY 1 DAYS
     Route: 065

REACTIONS (5)
  - Tachycardia [Recovered/Resolved]
  - Myocarditis [Recovered/Resolved]
  - Decreased appetite [Recovered/Resolved]
  - Lipase increased [Recovered/Resolved]
  - Pyrexia [Recovered/Resolved]
